FAERS Safety Report 10205316 (Version 1)
Quarter: 2014Q2

REPORT INFORMATION
  Report Type: Spontaneous
  Country: GB (occurrence: GB)
  Receive Date: 20140529
  Receipt Date: 20140529
  Transmission Date: 20141212
  Serious: Yes (Hospitalization, Other)
  Sender: FDA-Public Use
  Company Number: GB-WATSON-2014-11140

PATIENT
  Age: 79 Year
  Sex: Female

DRUGS (1)
  1. DESMOPRESSIN (UNKNOWN) [Suspect]
     Indication: ENURESIS
     Dosage: 100 ?G, DAILY
     Route: 048
     Dates: start: 20140418, end: 20140501

REACTIONS (2)
  - Hyponatraemia [Recovering/Resolving]
  - Off label use [Unknown]
